FAERS Safety Report 9318623 (Version 2)
Quarter: 2013Q2

REPORT INFORMATION
  Report Type: Spontaneous
  Country: BR (occurrence: BR)
  Receive Date: 20130530
  Receipt Date: 20130605
  Transmission Date: 20140414
  Serious: Yes (Death, Life-Threatening, Hospitalization, Other)
  Sender: FDA-Public Use
  Company Number: BR-ELI_LILLY_AND_COMPANY-BR201305006726

PATIENT
  Age: 53 Year
  Sex: Female
  Weight: 45 kg

DRUGS (1)
  1. FORTEO [Suspect]
     Indication: BONE DISORDER
     Dosage: 20 UG, OTHER
     Route: 058
     Dates: start: 201209

REACTIONS (9)
  - Pulmonary sepsis [Fatal]
  - Cardio-respiratory arrest [Fatal]
  - Dyspnoea [Unknown]
  - Pneumonia [Unknown]
  - Influenza [Unknown]
  - Hypertension [Unknown]
  - Hepatomegaly [Unknown]
  - Dyspnoea [Unknown]
  - Overdose [Unknown]
